FAERS Safety Report 12635629 (Version 3)
Quarter: 2016Q4

REPORT INFORMATION
  Report Type: Spontaneous
  Country: US (occurrence: US)
  Receive Date: 20160809
  Receipt Date: 20161108
  Transmission Date: 20170207
  Serious: No
  Sender: FDA-Public Use
  Company Number: US-BIOGEN-2016BI00274960

PATIENT
  Sex: Male

DRUGS (1)
  1. TECFIDERA [Suspect]
     Active Substance: DIMETHYL FUMARATE
     Indication: MULTIPLE SCLEROSIS
     Route: 065
     Dates: start: 20150731

REACTIONS (4)
  - Dysgraphia [Not Recovered/Not Resolved]
  - Abasia [Unknown]
  - Device failure [Not Recovered/Not Resolved]
  - Gait disturbance [Not Recovered/Not Resolved]
